FAERS Safety Report 7536320-1 (Version None)
Quarter: 2011Q2

REPORT INFORMATION
  Report Type: 
  Country: None (occurrence: None)
  Receive Date: 20110608
  Receipt Date: 20110608
  Transmission Date: 20111010
  Serious: Yes (Hospitalization)
  Sender: FDA-Public Use
  Company Number: None

PATIENT
  Age: 68 Year
  Sex: Female

DRUGS (1)
  1. PROMETHAZINE [Suspect]
     Indication: NAUSEA
     Dosage: 12.5 MG ONCE IV
     Route: 042
     Dates: start: 20110605, end: 20110605

REACTIONS (2)
  - EXTRAPYRAMIDAL DISORDER [None]
  - AKATHISIA [None]
